FAERS Safety Report 6978424-8 (Version None)
Quarter: 2010Q3

REPORT INFORMATION
  Report Type: 
  Country: None (occurrence: None)
  Receive Date: 20100908
  Receipt Date: 20100824
  Transmission Date: 20110219
  Serious: Yes (Death)
  Sender: FDA-Public Use
  Company Number: B0672963A

PATIENT

DRUGS (4)
  1. AMPICILLIN + SULBACTAM (FORMULATION UNKNOWN) (GENERIC) (AMPICILLIN + S [Suspect]
     Indication: PROPHYLAXIS
     Dosage: TRANSPLACENTARY
     Route: 064
  2. ERYTHROMYCIN [Suspect]
     Dosage: TRNSPLACENTARY
  3. AMOXICILLIN TRIHYDRATE [Suspect]
     Dosage: TRANSPLACENTARY
  4. CEFAZOLIN SODIUM [Suspect]

REACTIONS (5)
  - CAESAREAN SECTION [None]
  - MATERNAL DRUGS AFFECTING FOETUS [None]
  - PNEUMONIA KLEBSIELLA [None]
  - PREMATURE BABY [None]
  - STREPTOCOCCAL BACTERAEMIA [None]
